FAERS Safety Report 7362081-5 (Version None)
Quarter: 2011Q1

REPORT INFORMATION
  Report Type: 
  Country: None (occurrence: None)
  Receive Date: 20110318
  Receipt Date: 20110308
  Transmission Date: 20110831
  Serious: Yes (Hospitalization)
  Sender: FDA-Public Use
  Company Number: US-JNJFOC-20100401656

PATIENT
  Sex: Female
  Weight: 56.2 kg

DRUGS (4)
  1. OXYCODONE HCL [Concomitant]
     Route: 048
  2. REMICADE [Suspect]
     Route: 042
  3. REMICADE [Suspect]
     Indication: CROHN'S DISEASE
     Route: 042
  4. REMICADE [Suspect]
     Dosage: TOTAL 10 DOSES
     Route: 042

REACTIONS (1)
  - COLECTOMY [None]
